FAERS Safety Report 22012409 (Version 1)
Quarter: 2023Q1

REPORT INFORMATION
  Report Type: Spontaneous
  Country: TW (occurrence: TW)
  Receive Date: 20230220
  Receipt Date: 20230220
  Transmission Date: 20230417
  Serious: Yes (Other)
  Sender: FDA-Public Use
  Company Number: TW-DSJP-DSJ-2023-106368

PATIENT
  Age: 78 Year
  Sex: Female

DRUGS (1)
  1. AMLODIPINE\HYDROCHLOROTHIAZIDE\OLMESARTAN [Suspect]
     Active Substance: AMLODIPINE\HYDROCHLOROTHIAZIDE\OLMESARTAN
     Indication: Hypertension
     Dosage: (20/5/12.5 MG), 1 DF QD
     Route: 048
     Dates: end: 20210329

REACTIONS (1)
  - Hyponatraemia [Recovered/Resolved]
